FAERS Safety Report 4481371-7 (Version None)
Quarter: 2004Q3

REPORT INFORMATION
  Report Type: 
  Country: None (occurrence: None)
  Receive Date: 20040923
  Receipt Date: 20040616
  Transmission Date: 20050211
  Serious: No
  Sender: FDA-Public Use
  Company Number: USA031051137

PATIENT
  Age: 74 Year
  Sex: Female
  Weight: 54 kg

DRUGS (6)
  1. FORTEO [Suspect]
     Indication: MULTIPLE FRACTURES
     Dosage: 20 UG DAY
     Dates: start: 20030901
  2. FOSAMAX [Concomitant]
  3. CALCIUM WITH VITAMIN D [Concomitant]
  4. ATENOLOL [Concomitant]
  5. ASPIRIN [Concomitant]
  6. LIPITOR [Concomitant]

REACTIONS (7)
  - ABDOMINAL PAIN UPPER [None]
  - DIZZINESS [None]
  - FOOD POISONING [None]
  - MALAISE [None]
  - PAIN IN EXTREMITY [None]
  - STOMACH DISCOMFORT [None]
  - VOMITING [None]
